FAERS Safety Report 18063934 (Version 1)
Quarter: 2020Q3

REPORT INFORMATION
  Report Type: Spontaneous
  Country: GB (occurrence: GB)
  Receive Date: 20200724
  Receipt Date: 20200724
  Transmission Date: 20201103
  Serious: Yes (Life-Threatening, Other)
  Sender: FDA-Public Use
  Company Number: GB-TEVA-2020-GB-1804041

PATIENT
  Age: 52 Year
  Sex: Female
  Weight: 98.42 kg

DRUGS (5)
  1. VENLAFAXINE [Concomitant]
     Active Substance: VENLAFAXINE HYDROCHLORIDE
     Dosage: 150 MG
  2. FERROUS FUMARATE [Concomitant]
     Active Substance: FERROUS FUMARATE
     Dosage: X2, UNIT DOSE: 210 MG
  3. LEVOTHYROXINE. [Concomitant]
     Active Substance: LEVOTHYROXINE
     Dosage: 100 MG
  4. MENOPACE [Concomitant]
     Indication: MENOPAUSE
  5. AMOXICILLIN. [Suspect]
     Active Substance: AMOXICILLIN
     Dosage: 1500 MG
     Route: 048
     Dates: start: 20200629, end: 20200701

REACTIONS (6)
  - Nightmare [Recovered/Resolved]
  - Depressed mood [Recovering/Resolving]
  - Emotional distress [Recovering/Resolving]
  - Suicidal ideation [Recovered/Resolved]
  - Crying [Recovering/Resolving]
  - Feelings of worthlessness [Recovered/Resolved]
